FAERS Safety Report 8438986-0 (Version None)
Quarter: 2012Q2

REPORT INFORMATION
  Report Type: 
  Country: None (occurrence: None)
  Receive Date: 20120615
  Receipt Date: 20120608
  Transmission Date: 20120825
  Serious: No
  Sender: FDA-Public Use
  Company Number: US-PFIZER INC-2012109748

PATIENT
  Sex: Female

DRUGS (5)
  1. ZYVOX [Suspect]
     Indication: STAPHYLOCOCCAL INFECTION
     Dosage: 600 MG, 2X/DAY
     Route: 048
     Dates: start: 20120403
  2. FUROSEMIDE [Concomitant]
     Dosage: UNK
  3. POTASSIUM CHLORIDE [Concomitant]
     Dosage: 20 MEQ, 1X/DAY
     Route: 048
  4. PRAVASTATIN [Concomitant]
     Dosage: 80 MG, 1X/DAY
     Route: 048
  5. METOPROLOL [Concomitant]
     Dosage: UNK

REACTIONS (3)
  - MALAISE [None]
  - NAUSEA [None]
  - VOMITING [None]
